FAERS Safety Report 10862112 (Version 1)
Quarter: 2015Q1

REPORT INFORMATION
  Report Type: Spontaneous
  Country: IT (occurrence: IT)
  Receive Date: 20150224
  Receipt Date: 20150224
  Transmission Date: 20150721
  Serious: Yes (Disabling, Other)
  Sender: FDA-Public Use
  Company Number: IT-BANPHARM-20153427

PATIENT
  Age: 53 Year
  Sex: Female

DRUGS (1)
  1. CETIRIZINE [Suspect]
     Active Substance: CETIRIZINE HYDROCHLORIDE
     Indication: URTICARIA
     Dosage: 10 MG, QD,

REACTIONS (5)
  - Weight decreased [Unknown]
  - Incorrect drug administration duration [Recovered/Resolved]
  - Oromandibular dystonia [Recovered/Resolved with Sequelae]
  - Parkinsonism [Recovered/Resolved with Sequelae]
  - Feeding disorder [Unknown]
